FAERS Safety Report 22111128 (Version 1)
Quarter: 2023Q1

REPORT INFORMATION
  Report Type: Spontaneous
  Country: CZ (occurrence: CZ)
  Receive Date: 20230317
  Receipt Date: 20230317
  Transmission Date: 20230417
  Serious: Yes (Other)
  Sender: FDA-Public Use
  Company Number: None

PATIENT
  Age: 52 Year
  Sex: Female

DRUGS (1)
  1. COSENTYX [Suspect]
     Active Substance: SECUKINUMAB
     Indication: Psoriasis
     Dosage: 300 MG (300 MG IN A WEEK 0, 1, 2, 3 A 4, THAN 300 MG EVERY 4 WEEKS; SUBCUTANEOUSLY)
     Route: 058
     Dates: start: 20190926

REACTIONS (1)
  - Adenocarcinoma of the cervix [Unknown]

NARRATIVE: CASE EVENT DATE: 20230104
